FAERS Safety Report 8457050-8 (Version None)
Quarter: 2012Q2

REPORT INFORMATION
  Report Type: 
  Country: None (occurrence: None)
  Receive Date: 20120621
  Receipt Date: 20120611
  Transmission Date: 20120825
  Serious: Yes (Hospitalization, Other)
  Sender: FDA-Public Use
  Company Number: US-ELI_LILLY_AND_COMPANY-US201106005492

PATIENT
  Sex: Female

DRUGS (16)
  1. VITAMIN D [Concomitant]
     Route: 065
  2. ESCITALOPRAM OXALATE [Concomitant]
  3. GABAPENTIN [Concomitant]
     Dosage: 900 MG, TID
  4. HYDROCODONE [Concomitant]
     Dosage: 325 MG, UNK
  5. PROTONIX [Concomitant]
     Dosage: 40 MG, QD
  6. FORTEO [Suspect]
     Indication: OSTEOPOROSIS
     Dosage: 20 UG, QD
     Route: 065
  7. FORTEO [Suspect]
     Dosage: 20 UG, QD
  8. DILANTIN [Concomitant]
     Dosage: 100 MG, TID
  9. NOVOLOG [Concomitant]
  10. ERGOCALCIFEROL [Concomitant]
  11. PREDNISONE [Concomitant]
     Dosage: 5 MG, UNK
  12. PROGRAF [Concomitant]
     Dosage: 2.5 MG, BID
  13. KEPPRA [Concomitant]
     Dosage: 750 MG, UNK
  14. FORTEO [Suspect]
     Dosage: 20 UG, QD
  15. ASPIRIN [Concomitant]
  16. LASIX [Concomitant]
     Dosage: 40 MG, UNK

REACTIONS (8)
  - GRAND MAL CONVULSION [None]
  - NERVOUS SYSTEM DISORDER [None]
  - DRUG DOSE OMISSION [None]
  - DEEP VEIN THROMBOSIS [None]
  - BLOOD DISORDER [None]
  - MOBILITY DECREASED [None]
  - SHUNT MALFUNCTION [None]
  - INFECTION [None]
